FAERS Safety Report 7522522-7 (Version None)
Quarter: 2011Q2

REPORT INFORMATION
  Report Type: 
  Country: None (occurrence: None)
  Receive Date: 20110603
  Receipt Date: 20110527
  Transmission Date: 20111010
  Serious: Yes (Hospitalization)
  Sender: FDA-Public Use
  Company Number: JP-ROCHE-778619

PATIENT
  Sex: Female
  Weight: 37 kg

DRUGS (15)
  1. SELBEX [Concomitant]
     Route: 048
  2. ALFACALCIDOL [Concomitant]
     Dosage: ALSIODOL
     Route: 048
  3. FOLIC ACID [Concomitant]
     Route: 048
     Dates: start: 20050101
  4. ACTEMRA [Suspect]
     Indication: RHEUMATOID ARTHRITIS
     Dosage: NOTE: 270-320MG
     Route: 041
     Dates: start: 20080627
  5. FERROUS CITRATE [Concomitant]
     Route: 048
  6. PROGRAF [Concomitant]
     Route: 048
     Dates: start: 20080917, end: 20081004
  7. PROGRAF [Concomitant]
     Route: 048
     Dates: start: 20080528, end: 20080916
  8. RHEUMATREX [Concomitant]
     Route: 048
     Dates: start: 20050607
  9. LANSOPRAZOLE [Concomitant]
     Route: 048
  10. RHEUMATREX [Concomitant]
     Route: 048
     Dates: start: 20081217
  11. PREDNISOLONE [Concomitant]
     Route: 048
     Dates: start: 20080820, end: 20081004
  12. RHEUMATREX [Concomitant]
     Route: 048
     Dates: start: 20050101, end: 20080723
  13. RHEUMATREX [Concomitant]
     Route: 048
     Dates: start: 20081119, end: 20081216
  14. ALENDRONATE SODIUM [Concomitant]
     Dosage: FOSAMAC 35MG
     Route: 048
  15. PREDNISOLONE [Concomitant]
     Route: 048
     Dates: end: 20080819

REACTIONS (2)
  - OSTEOARTHRITIS [None]
  - PATELLA FRACTURE [None]
